FAERS Safety Report 15965096 (Version 1)
Quarter: 2019Q1

REPORT INFORMATION
  Report Type: Spontaneous
  Country: US (occurrence: US)
  Receive Date: 20190124
  Receipt Date: 20190124
  Transmission Date: 20190418
  Serious: Yes (Disabling, Other)
  Sender: FDA-Public Use
  Company Number: None

PATIENT
  Age: 82 Year
  Sex: Female
  Weight: 90.72 kg

DRUGS (7)
  1. HCTZ [Concomitant]
     Active Substance: HYDROCHLOROTHIAZIDE
  2. SAXAGLIPTIN HCL [Concomitant]
     Active Substance: SAXAGLIPTIN HYDROCHLORIDE
  3. MYRBETRIQ [Suspect]
     Active Substance: MIRABEGRON
     Dosage: ?          QUANTITY:1 DF DOSAGE FORM;?
     Route: 048
     Dates: start: 20181125, end: 20181228
  4. GLIPIZIDE. [Concomitant]
     Active Substance: GLIPIZIDE
  5. CBD [Concomitant]
     Active Substance: CANNABIDIOL
  6. TYLENOL [Concomitant]
     Active Substance: ACETAMINOPHEN
  7. ASA [Concomitant]
     Active Substance: ASPIRIN

REACTIONS (4)
  - Vulvovaginal pruritus [None]
  - Vulvovaginal burning sensation [None]
  - Erythema [None]
  - Swelling [None]

NARRATIVE: CASE EVENT DATE: 20181125
